FAERS Safety Report 8493967-6 (Version None)
Quarter: 2012Q3

REPORT INFORMATION
  Report Type: 
  Country: None (occurrence: None)
  Receive Date: 20120709
  Receipt Date: 20120705
  Transmission Date: 20120928
  Serious: Yes (Other)
  Sender: FDA-Public Use
  Company Number: SG-BAYER-2012-067258

PATIENT
  Age: 61 Year
  Sex: Female

DRUGS (1)
  1. ASPIRIN [Suspect]
     Dosage: DAILY DOSE 300 MG
     Route: 048
     Dates: start: 20120602, end: 20120602

REACTIONS (2)
  - WHEEZING [None]
  - ANGIOEDEMA [None]
